FAERS Safety Report 5274703-3 (Version None)
Quarter: 2007Q1

REPORT INFORMATION
  Report Type: 
  Country: None (occurrence: None)
  Receive Date: 20070320
  Receipt Date: 20070309
  Transmission Date: 20070707
  Serious: Yes (Hospitalization)
  Sender: FDA-Public Use
  Company Number: 0702-SPO-VANT-0020

PATIENT
  Age: 88 Year
  Sex: Male

DRUGS (1)
  1. VANTAS [Suspect]
     Indication: PROSTATE CANCER
     Dosage: 50 MG, 1 IN 1 Y, SUB Q. IMPLANT
     Route: 058
     Dates: start: 20060315, end: 20070131

REACTIONS (4)
  - CEREBROVASCULAR ACCIDENT [None]
  - DRUG INEFFECTIVE [None]
  - HYPOAESTHESIA [None]
  - OEDEMA PERIPHERAL [None]
